FAERS Safety Report 22368048 (Version 2)
Quarter: 2023Q2

REPORT INFORMATION
  Report Type: Spontaneous
  Country: US (occurrence: US)
  Receive Date: 20230525
  Receipt Date: 20230606
  Transmission Date: 20230722
  Serious: No
  Sender: FDA-Public Use
  Company Number: US-LUPIN PHARMACEUTICALS INC.-2023-03894

PATIENT

DRUGS (2)
  1. ALBUTEROL SULFATE [Suspect]
     Active Substance: ALBUTEROL SULFATE
     Indication: Dyspnoea
     Dosage: UNK, Q4H (2 PUFFS EVERY 4 HOURS)
  2. ALBUTEROL SULFATE [Suspect]
     Active Substance: ALBUTEROL SULFATE
     Indication: Wheezing
     Dosage: UNK, Q4H (2 PUFFS EVERY 4 HOURS)
     Dates: start: 202305

REACTIONS (3)
  - Discomfort [Unknown]
  - Drug dose omission by device [Unknown]
  - Device delivery system issue [Unknown]
